FAERS Safety Report 9818854 (Version 3)
Quarter: 2014Q1

REPORT INFORMATION
  Report Type: Spontaneous
  Country: US (occurrence: US)
  Receive Date: 20140115
  Receipt Date: 20140328
  Transmission Date: 20141002
  Serious: Yes (Other)
  Sender: FDA-Public Use
  Company Number: US-PFIZER INC-2014011134

PATIENT
  Age: 70 Year
  Sex: Female
  Weight: 61.2 kg

DRUGS (3)
  1. PREMPRO [Suspect]
     Indication: MENOPAUSE
     Dosage: (0.3MG/1.5 MG), 1X/DAY
     Dates: start: 2010
  2. SYNTHROID [Concomitant]
     Indication: HYPERTHYROIDISM
     Dosage: 0.075 MG, 1X/DAY
  3. FISH OIL [Concomitant]
     Indication: PROPHYLAXIS
     Dosage: UNK

REACTIONS (3)
  - Vaginal haemorrhage [Not Recovered/Not Resolved]
  - Muscle spasms [Not Recovered/Not Resolved]
  - Hot flush [Not Recovered/Not Resolved]
